FAERS Safety Report 21233699 (Version 1)
Quarter: 2022Q3

REPORT INFORMATION
  Report Type: Spontaneous
  Country: US (occurrence: None)
  Receive Date: 20220819
  Receipt Date: 20220819
  Transmission Date: 20221027
  Serious: No
  Sender: FDA-Public Use
  Company Number: None

PATIENT
  Sex: Female

DRUGS (2)
  1. KEVZARA [Suspect]
     Active Substance: SARILUMAB
     Indication: Rheumatoid arthritis
  2. PROLIA [Concomitant]
     Active Substance: DENOSUMAB

REACTIONS (4)
  - Urticaria [None]
  - Fall [None]
  - Peripheral swelling [None]
  - Pruritus [None]
